FAERS Safety Report 21768386 (Version 1)
Quarter: 2022Q4

REPORT INFORMATION
  Report Type: Spontaneous
  Country: DK (occurrence: DK)
  Receive Date: 20221222
  Receipt Date: 20221222
  Transmission Date: 20230113
  Serious: Yes (Other)
  Sender: FDA-Public Use
  Company Number: DK-TEVA-2022-DK-2838358

PATIENT
  Sex: Male

DRUGS (1)
  1. TENOFOVIR DISOPROXIL FUMARATE [Suspect]
     Active Substance: TENOFOVIR DISOPROXIL FUMARATE
     Indication: Chronic hepatitis B
     Dosage: 245 MILLIGRAM DAILY; ADDITIONAL INFO: ACTION TAKEN: DRUG WITHDRAWN IN 2014 AND RESTARTED IN 2017
     Route: 065
     Dates: start: 2011

REACTIONS (1)
  - Drug resistance [Unknown]
